FAERS Safety Report 24334550 (Version 1)
Quarter: 2024Q3

REPORT INFORMATION
  Report Type: Report from Study
  Country: US (occurrence: US)
  Receive Date: 20240918
  Receipt Date: 20240918
  Transmission Date: 20241017
  Serious: Yes (Other)
  Sender: NOVARTIS
  Company Number: US-002147023-NVSC2024US092938

PATIENT
  Age: 69 Year
  Sex: Female

DRUGS (1)
  1. KESIMPTA [Suspect]
     Active Substance: OFATUMUMAB
     Indication: Product used for unknown indication
     Dosage: 20 MG, QW
     Route: 058
     Dates: start: 20240426

REACTIONS (11)
  - Multiple sclerosis [Unknown]
  - Fatigue [Recovered/Resolved]
  - Pain [Recovered/Resolved]
  - Fungal infection [Not Recovered/Not Resolved]
  - Clumsiness [Not Recovered/Not Resolved]
  - Hordeolum [Recovering/Resolving]
  - Rash [Recovering/Resolving]
  - COVID-19 [Recovering/Resolving]
  - Headache [Not Recovered/Not Resolved]
  - Nasal congestion [Not Recovered/Not Resolved]
  - Malaise [Not Recovered/Not Resolved]

NARRATIVE: CASE EVENT DATE: 20240426
